FAERS Safety Report 7439268-6 (Version None)
Quarter: 2011Q2

REPORT INFORMATION
  Report Type: 
  Country: None (occurrence: None)
  Receive Date: 20110427
  Receipt Date: 20090622
  Transmission Date: 20111010
  Serious: Yes (Hospitalization, Other)
  Sender: FDA-Public Use
  Company Number: US-BAYER-2011-005582

PATIENT
  Age: 62 Year
  Sex: Male
  Weight: 111 kg

DRUGS (53)
  1. TRASYLOL [Suspect]
     Dosage: 50ML/HR
     Route: 042
     Dates: start: 20050504, end: 20050504
  2. ATROVENT [Concomitant]
     Dosage: INHALATION, PRN LONG TERM USE
  3. PLAVIX [Concomitant]
     Dosage: 75 MG, QD, LONG TERM USE
  4. REGLAN [Concomitant]
     Dosage: 10 MG, PREOPERATIVE
     Route: 042
     Dates: start: 20050504
  5. CARDENE [Concomitant]
     Indication: BLOOD PRESSURE ABNORMAL
     Dosage: TITRATED
     Route: 042
     Dates: start: 20050504
  6. NITROGLYCERIN [Concomitant]
     Dosage: LONGTERM USE
     Route: 062
  7. CEFUROXIME [Concomitant]
     Dosage: 1.5 G, BID
     Route: 042
     Dates: start: 20050504, end: 20050504
  8. PRILOSEC [Concomitant]
     Route: 048
  9. TRASYLOL [Suspect]
     Indication: CORONARY ARTERY BYPASS
     Dosage: 1 ML, UNK
     Route: 042
     Dates: start: 20050504
  10. AVANDIA [Concomitant]
     Dosage: 4 MG, QD LONG TERM USE
     Route: 048
  11. LOPRESSOR [Concomitant]
     Dosage: 25 MG, BID
     Route: 048
     Dates: start: 20050505
  12. ATIVAN [Concomitant]
     Dosage: 2 MG PREOPERATIVE, UNK
     Route: 042
  13. SEVOFLURANE [Concomitant]
     Dosage: INHALED
     Dates: start: 20050504, end: 20050504
  14. ETOMIDATE [Concomitant]
     Dosage: 16 MG, UNK
     Route: 042
     Dates: start: 20050504, end: 20050504
  15. PAVULON [Concomitant]
     Dosage: 15 MG, UNK
     Route: 042
     Dates: start: 20050504, end: 20050504
  16. INSULIN [Concomitant]
     Dosage: TITRATED
     Route: 042
     Dates: start: 20050504
  17. LASIX [Concomitant]
     Dosage: 20 MG, QD
     Route: 048
     Dates: start: 20030101
  18. CELEBREX [Concomitant]
     Dosage: 200 MG, QD
  19. GLYBURIDE [Concomitant]
     Dosage: 6 MG, LONG TERM USE
     Route: 048
  20. ATIVAN [Concomitant]
     Dosage: 4 MG, UNK
     Route: 042
     Dates: start: 20050504, end: 20050504
  21. AMIODARONE [Concomitant]
     Indication: ATRIAL FIBRILLATION
     Dosage: UNK
     Dates: start: 20050523
  22. TORADOL [Concomitant]
     Dosage: 30 MG, EVERY 6 HOURS FOR 24 HOURS, THEN DISCONTINUED
     Route: 042
     Dates: start: 20050505, end: 20050506
  23. HEPARIN [Concomitant]
     Dosage: 600 MG, UNK
     Route: 042
     Dates: start: 20050504, end: 20050504
  24. FENTANYL [Concomitant]
     Dosage: 25 ?G, UNK
     Route: 042
     Dates: start: 20050504, end: 20050504
  25. CARDIZEM [Concomitant]
     Dosage: TITRATED
     Route: 042
     Dates: start: 20050504
  26. PERCOCET [Concomitant]
     Dosage: 5-10 MG
     Route: 048
  27. BLOOD CELLS, PACKED HUMAN [Concomitant]
     Dosage: 2 U, UNK
     Dates: start: 20050516
  28. LASIX [Concomitant]
     Dosage: 40-60MG
     Route: 042
     Dates: start: 20050505
  29. ALBUTEROL [Concomitant]
     Dosage: INHALATION, PRN LONG TERM USE
  30. IMDUR [Concomitant]
     Dosage: 30 MG, QD
     Route: 048
     Dates: start: 20050504
  31. LANOXIN [Concomitant]
     Dosage: 0.25 MG, QD
     Dates: start: 20050504
  32. AMOXICILLIN [Concomitant]
     Dosage: UNK
     Dates: start: 20050519
  33. TRASYLOL [Suspect]
     Dosage: 2000000 KIU, PUMP PRIME
     Dates: start: 20050504
  34. AEROBID [Concomitant]
     Dosage: INHALATION, PRN LONG TERM USE
  35. LIPITOR [Concomitant]
     Dosage: 80 MG, QD LONG TERM USE
     Route: 048
  36. LOVENOX [Concomitant]
     Dosage: 30 MG, BID
     Route: 058
     Dates: start: 20050504
  37. SOLU-MEDROL [Concomitant]
     Dosage: 500 MG, UNK
     Route: 042
     Dates: start: 20050504, end: 20050504
  38. PRAVACHOL [Concomitant]
     Dosage: 80 MG, QD
     Route: 048
     Dates: start: 20050503
  39. LEVAQUIN [Concomitant]
     Indication: URINARY TRACT INFECTION
     Dosage: UNK
     Route: 042
     Dates: start: 20050513, end: 20050519
  40. TRASYLOL [Suspect]
     Dosage: 400ML/HR UNK, UNK
     Dates: start: 20050504, end: 20050504
  41. ASPIRIN [Concomitant]
     Dosage: 325 MG, QD
     Route: 048
  42. COREG [Concomitant]
     Dosage: 12.5 MG, BID
     Route: 048
     Dates: start: 20030722
  43. DARVOCET [Concomitant]
     Indication: PAIN
     Dosage: 650 MG, PRN
     Route: 048
     Dates: start: 20050503
  44. ZEMURON [Concomitant]
     Dosage: 100 MG, UNK
     Route: 042
     Dates: start: 20050504, end: 20050504
  45. METFORMIN [Concomitant]
     Dosage: 850 MG, QD, LONG TERM USE
     Route: 048
  46. LORAZEPAM [Concomitant]
     Dosage: UNK UNK, PRN, LONG TERM USE
     Route: 048
  47. DEMADEX [Concomitant]
     Dosage: DAILY DOSE 80 MG
     Route: 042
     Dates: start: 20050506, end: 20050506
  48. MIDAZOLAM [Concomitant]
     Dosage: 1-2 MG, UNK
     Route: 042
     Dates: start: 20050504
  49. PROTAMINE SULFATE [Concomitant]
     Dosage: 200 MG, UNK
     Route: 042
     Dates: start: 20050504, end: 20050504
  50. PEPCID (NOS) [Concomitant]
     Dosage: 20 MG, BID
     Route: 048
     Dates: start: 20050504
  51. TICLID [Concomitant]
     Route: 048
  52. OMNIPAQUE 140 [Concomitant]
     Indication: CATHETERISATION CARDIAC
     Dosage: 175 ML, UNK
  53. BLOOD CELLS, PACKED HUMAN [Concomitant]
     Dosage: 2 U, UNK
     Dates: start: 20050523

REACTIONS (10)
  - RENAL FAILURE [None]
  - RENAL INJURY [None]
  - UNEVALUABLE EVENT [None]
  - FEAR [None]
  - EMOTIONAL DISTRESS [None]
  - INJURY [None]
  - STRESS [None]
  - ANXIETY [None]
  - PAIN [None]
  - RENAL IMPAIRMENT [None]
